FAERS Safety Report 8005063-2 (Version None)
Quarter: 2011Q4

REPORT INFORMATION
  Report Type: 
  Country: None (occurrence: None)
  Receive Date: 20111223
  Receipt Date: 20111222
  Transmission Date: 20120403
  Serious: Yes (Death)
  Sender: FDA-Public Use
  Company Number: DE-B.I. PHARMACEUTICALS,INC./RIDGEFIELD-2011-DE-06888DE

PATIENT
  Age: 74 Year
  Sex: Female
  Weight: 50 kg

DRUGS (5)
  1. METOPROLOL SUCCINATE [Concomitant]
     Indication: CARDIAC FAILURE
     Dosage: 47.5 MG
     Route: 048
     Dates: end: 20111016
  2. PRADAXA [Suspect]
     Indication: CEREBROVASCULAR ACCIDENT
     Dosage: 150 MG
     Route: 048
     Dates: start: 20110923, end: 20111014
  3. AMIODARONE HCL [Concomitant]
     Indication: ATRIAL FIBRILLATION
     Dosage: 200 MG
     Route: 048
     Dates: end: 20111016
  4. LYRICA [Concomitant]
     Indication: POLYNEUROPATHY
     Route: 048
     Dates: end: 20111015
  5. DUROGESIC 50MCG/H [Concomitant]
     Indication: ANALGESIC THERAPY
     Dosage: 50MCG/H
     Route: 062
     Dates: start: 20110501, end: 20111014

REACTIONS (4)
  - AORTIC ANEURYSM RUPTURE [None]
  - HAEMORRHAGIC ASCITES [None]
  - OVERDOSE [None]
  - PERICARDIAL EFFUSION [None]
